FAERS Safety Report 24252563 (Version 1)
Quarter: 2024Q3

REPORT INFORMATION
  Report Type: Spontaneous
  Country: CA (occurrence: CA)
  Receive Date: 20240827
  Receipt Date: 20240827
  Transmission Date: 20241016
  Serious: Yes (Other)
  Sender: AUROBINDO
  Company Number: CA-AUROBINDO-AUR-APL-2024-042343

PATIENT
  Age: 21 Year
  Sex: Female

DRUGS (5)
  1. MONTELUKAST [Suspect]
     Active Substance: MONTELUKAST SODIUM
     Indication: Product used for unknown indication
     Dosage: 10 MILLIGRAM, ONCE A DAY (1 EVERY 1 DAYS)
     Route: 048
  2. BILASTINE [Suspect]
     Active Substance: BILASTINE
     Indication: Pruritus
     Dosage: 20 MILLIGRAM
     Route: 065
  3. CLARITIN [Suspect]
     Active Substance: LORATADINE
     Indication: Pruritus
     Dosage: UNK
     Route: 065
  4. RUPATADINE [Suspect]
     Active Substance: RUPATADINE
     Indication: Pruritus
     Dosage: UNK
     Route: 065
  5. PULMICORT TURBUHALER [Suspect]
     Active Substance: BUDESONIDE
     Indication: Dyspnoea
     Dosage: 250 MILLIGRAM, TWO TIMES A DAY (2 EVERY 1 DAYS)
     Route: 065

REACTIONS (4)
  - Angioedema [Unknown]
  - Chronic spontaneous urticaria [Unknown]
  - Dyspnoea [Unknown]
  - Urticaria [Unknown]
